FAERS Safety Report 8615031-5 (Version None)
Quarter: 2012Q3

REPORT INFORMATION
  Report Type: 
  Country: None (occurrence: None)
  Receive Date: 20120823
  Receipt Date: 20120815
  Transmission Date: 20120928
  Serious: Yes (Other)
  Sender: FDA-Public Use
  Company Number: US-SANOFI-AVENTIS-2012SA028493

PATIENT
  Age: 91 Year
  Sex: Female
  Weight: 79.5 kg

DRUGS (7)
  1. AGGRENOX [Concomitant]
  2. PLAVIX [Suspect]
     Route: 048
     Dates: start: 20030115, end: 20060115
  3. SIMVASTATIN [Concomitant]
  4. OMEPRAZOLE [Concomitant]
  5. GLIMEPIRIDE [Concomitant]
  6. PLAVIX [Suspect]
     Indication: PLATELET AGGREGATION INHIBITION
     Route: 048
     Dates: start: 20030115, end: 20060115
  7. JANUVIA [Concomitant]

REACTIONS (9)
  - HEART RATE INCREASED [None]
  - MYOCARDIAL INFARCTION [None]
  - HYPOAESTHESIA [None]
  - TRANSIENT ISCHAEMIC ATTACK [None]
  - PALPITATIONS [None]
  - DIZZINESS [None]
  - MEMORY IMPAIRMENT [None]
  - ABDOMINAL PAIN [None]
  - DISORIENTATION [None]
